FAERS Safety Report 12494353 (Version 2)
Quarter: 2016Q3

REPORT INFORMATION
  Report Type: Spontaneous
  Country: DE (occurrence: DE)
  Receive Date: 20160623
  Receipt Date: 20160706
  Transmission Date: 20161109
  Serious: Yes (Death, Hospitalization, Disabling, Other)
  Sender: FDA-Public Use
  Company Number: DE-GILEAD-2016-0220009

PATIENT
  Age: 73 Year
  Sex: Male
  Weight: 80 kg

DRUGS (12)
  1. ALLOPURINOL. [Concomitant]
     Active Substance: ALLOPURINOL
  2. RITUXIMAB [Concomitant]
     Active Substance: RITUXIMAB
     Dosage: 375 MG/M2, UNK
     Dates: start: 20160610
  3. JANUMET [Concomitant]
     Active Substance: METFORMIN HYDROCHLORIDE\SITAGLIPTIN PHOSPHATE
  4. AVALOX [Concomitant]
     Active Substance: MOXIFLOXACIN HYDROCHLORIDE
  5. ESOMEPRAZOL                        /01479301/ [Concomitant]
     Active Substance: ESOMEPRAZOLE
  6. MEX [Concomitant]
  7. ZYDELIG [Suspect]
     Active Substance: IDELALISIB
     Indication: CHRONIC LYMPHOCYTIC LEUKAEMIA
     Dosage: UNK
     Route: 065
     Dates: start: 2015
  8. ZYDELIG [Suspect]
     Active Substance: IDELALISIB
     Dosage: UNK
     Route: 065
     Dates: start: 201505, end: 20160520
  9. ASA [Concomitant]
     Active Substance: ASPIRIN
  10. VALSARTAN. [Concomitant]
     Active Substance: VALSARTAN
  11. RITUXIMAB [Concomitant]
     Active Substance: RITUXIMAB
     Indication: CHRONIC LYMPHOCYTIC LEUKAEMIA
     Dosage: UNK
     Route: 065
     Dates: start: 2015
  12. NUTRISON ADVANCED CUBISON [Concomitant]

REACTIONS (11)
  - Pneumonitis [Unknown]
  - Septic shock [Fatal]
  - Subcutaneous emphysema [Recovered/Resolved]
  - Acute abdomen [Unknown]
  - Pneumothorax [Unknown]
  - Large intestine perforation [Fatal]
  - Pyrexia [Fatal]
  - Lung infection [Unknown]
  - Pneumonia [Fatal]
  - Intensive care unit acquired weakness [Unknown]
  - Constipation [Unknown]

NARRATIVE: CASE EVENT DATE: 2016
